FAERS Safety Report 20735400 (Version 1)
Quarter: 2022Q2

REPORT INFORMATION
  Report Type: Spontaneous
  Country: US (occurrence: US)
  Receive Date: 20220421
  Receipt Date: 20220421
  Transmission Date: 20220721
  Serious: No
  Sender: FDA-Public Use
  Company Number: US-GSKCCFUS-Case-01355148_AE-78497

PATIENT
  Sex: Male

DRUGS (3)
  1. LAMICTAL [Suspect]
     Active Substance: LAMOTRIGINE
     Indication: Product used for unknown indication
     Dosage: 25 MG, QD
  2. LAMICTAL [Suspect]
     Active Substance: LAMOTRIGINE
     Dosage: 50 MG, QD
     Dates: start: 202203
  3. LAMICTAL [Suspect]
     Active Substance: LAMOTRIGINE
     Dosage: 100 MG, QD

REACTIONS (2)
  - Abdominal pain upper [Not Recovered/Not Resolved]
  - Abdominal distension [Not Recovered/Not Resolved]

NARRATIVE: CASE EVENT DATE: 20220101
